FAERS Safety Report 9935646 (Version 3)
Quarter: 2014Q2

REPORT INFORMATION
  Report Type: Spontaneous
  Country: TW (occurrence: TW)
  Receive Date: 20140228
  Receipt Date: 20140512
  Transmission Date: 20141212
  Serious: Yes (Death)
  Sender: FDA-Public Use
  Company Number: TW-B.I. PHARMACEUTICALS,INC./RIDGEFIELD-2014-BI-09112YA

PATIENT
  Age: 73 Year
  Sex: Male

DRUGS (4)
  1. TAMSULOSINA [Suspect]
     Indication: BENIGN PROSTATIC HYPERPLASIA
     Dosage: 0.2 MG
     Route: 048
  2. TAMSULOSINA [Suspect]
     Dosage: 0.4 MG
     Route: 048
     Dates: start: 20131104, end: 20131104
  3. IMIPRAMINE [Suspect]
     Indication: NOCTURIA
     Dosage: 25 MG
     Route: 048
     Dates: start: 20131104, end: 20131104
  4. DOXABEN [Concomitant]
     Route: 065

REACTIONS (3)
  - Arrhythmia [Fatal]
  - Cardiac failure acute [Fatal]
  - Renal failure acute [Fatal]
